FAERS Safety Report 20714970 (Version 1)
Quarter: 2022Q2

REPORT INFORMATION
  Report Type: Spontaneous
  Country: CA (occurrence: CA)
  Receive Date: 20220415
  Receipt Date: 20220415
  Transmission Date: 20220721
  Serious: Yes (Hospitalization, Other)
  Sender: FDA-Public Use
  Company Number: CA-AstraZeneca-2020SF40649

PATIENT
  Age: 74 Year
  Sex: Female

DRUGS (25)
  1. ALVESCO [Suspect]
     Active Substance: CICLESONIDE
     Indication: Product used for unknown indication
     Route: 065
  2. HYDROXYUREA [Suspect]
     Active Substance: HYDROXYUREA
     Indication: Product used for unknown indication
     Route: 065
  3. NUCALA [Suspect]
     Active Substance: MEPOLIZUMAB
     Indication: Asthma
     Route: 065
     Dates: start: 20190821
  4. NUCALA [Suspect]
     Active Substance: MEPOLIZUMAB
     Indication: Asthma
     Route: 065
     Dates: start: 20190821
  5. ALBUTEROL SULFATE [Suspect]
     Active Substance: ALBUTEROL SULFATE
     Indication: Product used for unknown indication
     Route: 065
  6. PREDNISONE [Suspect]
     Active Substance: PREDNISONE
     Indication: Product used for unknown indication
     Dosage: 10.0MG UNKNOWN
     Route: 065
  7. PREDNISONE [Suspect]
     Active Substance: PREDNISONE
     Indication: Asthma
     Dosage: 10.0MG UNKNOWN
     Route: 065
  8. PREDNISONE [Suspect]
     Active Substance: PREDNISONE
     Indication: Purpura
     Dosage: 10.0MG UNKNOWN
     Route: 065
  9. PREDNISONE [Suspect]
     Active Substance: PREDNISONE
     Indication: Oedema peripheral
     Dosage: 10.0MG UNKNOWN
     Route: 065
  10. PREDNISONE [Suspect]
     Active Substance: PREDNISONE
     Indication: Product used for unknown indication
     Dosage: 5.0MG UNKNOWN
     Route: 065
  11. PREDNISONE [Suspect]
     Active Substance: PREDNISONE
     Indication: Asthma
     Dosage: 5.0MG UNKNOWN
     Route: 065
  12. PREDNISONE [Suspect]
     Active Substance: PREDNISONE
     Indication: Purpura
     Dosage: 5.0MG UNKNOWN
     Route: 065
  13. PREDNISONE [Suspect]
     Active Substance: PREDNISONE
     Indication: Oedema peripheral
     Dosage: 5.0MG UNKNOWN
     Route: 065
  14. PREDNISONE [Suspect]
     Active Substance: PREDNISONE
     Indication: Product used for unknown indication
     Dosage: 10.0MG UNKNOWN
     Route: 065
  15. PREDNISONE [Suspect]
     Active Substance: PREDNISONE
     Indication: Asthma
     Dosage: 10.0MG UNKNOWN
     Route: 065
  16. PREDNISONE [Suspect]
     Active Substance: PREDNISONE
     Indication: Purpura
     Dosage: 10.0MG UNKNOWN
     Route: 065
  17. PREDNISONE [Suspect]
     Active Substance: PREDNISONE
     Indication: Oedema peripheral
     Dosage: 10.0MG UNKNOWN
     Route: 065
  18. PREDNISONE [Suspect]
     Active Substance: PREDNISONE
     Indication: Product used for unknown indication
     Dosage: 15.0MG UNKNOWN
     Route: 065
  19. PREDNISONE [Suspect]
     Active Substance: PREDNISONE
     Indication: Asthma
     Dosage: 15.0MG UNKNOWN
     Route: 065
  20. PREDNISONE [Suspect]
     Active Substance: PREDNISONE
     Indication: Purpura
     Dosage: 15.0MG UNKNOWN
     Route: 065
  21. PREDNISONE [Suspect]
     Active Substance: PREDNISONE
     Indication: Oedema peripheral
     Dosage: 15.0MG UNKNOWN
     Route: 065
  22. PREDNISONE [Suspect]
     Active Substance: PREDNISONE
     Indication: Product used for unknown indication
     Dosage: 5.0MG UNKNOWN
     Route: 065
     Dates: start: 202002
  23. PREDNISONE [Suspect]
     Active Substance: PREDNISONE
     Indication: Asthma
     Dosage: 5.0MG UNKNOWN
     Route: 065
     Dates: start: 202002
  24. PREDNISONE [Suspect]
     Active Substance: PREDNISONE
     Indication: Purpura
     Dosage: 5.0MG UNKNOWN
     Route: 065
     Dates: start: 202002
  25. PREDNISONE [Suspect]
     Active Substance: PREDNISONE
     Indication: Oedema peripheral
     Dosage: 5.0MG UNKNOWN
     Route: 065
     Dates: start: 202002

REACTIONS (15)
  - Anal incontinence [Unknown]
  - Asthma [Recovering/Resolving]
  - Contusion [Unknown]
  - Dermatitis [Unknown]
  - Dyspnoea [Recovering/Resolving]
  - Fatigue [Unknown]
  - Loss of consciousness [Unknown]
  - Loss of personal independence in daily activities [Recovering/Resolving]
  - Nausea [Unknown]
  - Oedema peripheral [Unknown]
  - Pneumonia [Unknown]
  - Purpura [Unknown]
  - Urinary incontinence [Unknown]
  - Wheezing [Recovering/Resolving]
  - Syncope [Unknown]
